FAERS Safety Report 23162184 (Version 2)
Quarter: 2023Q4

REPORT INFORMATION
  Report Type: Report from Study
  Country: KR (occurrence: KR)
  Receive Date: 20231109
  Receipt Date: 20231116
  Transmission Date: 20240110
  Serious: Yes (Hospitalization, Other)
  Sender: FDA-Public Use
  Company Number: KR-CELLTRION INC.-2023KR021336

PATIENT

DRUGS (6)
  1. TRUXIMA [Suspect]
     Active Substance: RITUXIMAB-ABBS
     Indication: Diffuse large B-cell lymphoma
     Dosage: 375 MG/M2, EVERY CYCLE D8
     Route: 042
     Dates: start: 20230912, end: 20231019
  2. TRUXIMA [Suspect]
     Active Substance: RITUXIMAB-ABBS
     Dosage: CYCLE1 DOSING / 375 MG/M2 QD IV ( TAPERED DOSE NOT APPLICABLE)
     Route: 042
     Dates: start: 20230904
  3. TRUXIMA [Suspect]
     Active Substance: RITUXIMAB-ABBS
     Dosage: CYCLE2 DOSE (STEP 1 TAPERED DOSE)/375MG/M2 ,QD, IV ( TAPERED DOSE NOT APPLICABLE)
     Route: 042
     Dates: start: 20231012
  4. MEROPENEM [Concomitant]
     Active Substance: MEROPENEM
     Indication: Infection prophylaxis
     Dosage: 1 G, QD
     Route: 042
     Dates: start: 20231102, end: 20231104
  5. CISPLATIN [Concomitant]
     Active Substance: CISPLATIN
     Dosage: 20% REDUCED ON CYCLE2
  6. GEMCITABINE [Concomitant]
     Active Substance: GEMCITABINE
     Dosage: UNK

REACTIONS (2)
  - Neutrophil count decreased [Recovering/Resolving]
  - Intentional product use issue [Unknown]

NARRATIVE: CASE EVENT DATE: 20231102
